FAERS Safety Report 21293169 (Version 1)
Quarter: 2022Q3

REPORT INFORMATION
  Report Type: Spontaneous
  Country: US (occurrence: US)
  Receive Date: 20220905
  Receipt Date: 20220905
  Transmission Date: 20221027
  Serious: No
  Sender: FDA-Public Use
  Company Number: US-BRISTOL-MYERS SQUIBB COMPANY-2022-100648

PATIENT
  Age: 64 Year
  Sex: Male
  Weight: 94.8 kg

DRUGS (2)
  1. POMALYST [Suspect]
     Active Substance: POMALIDOMIDE
     Indication: Plasma cell myeloma
     Route: 048
  2. XPOVIO [Concomitant]
     Active Substance: SELINEXOR
     Indication: Plasma cell myeloma
     Dosage: 60 MILLIGRAM, WEEKLY
     Route: 048
     Dates: start: 20220801

REACTIONS (1)
  - Fatigue [Not Recovered/Not Resolved]
